FAERS Safety Report 20508565 (Version 1)
Quarter: 2022Q1

REPORT INFORMATION
  Report Type: Spontaneous
  Country: US (occurrence: None)
  Receive Date: 20220223
  Receipt Date: 20220223
  Transmission Date: 20220424
  Serious: No
  Sender: FDA-Public Use
  Company Number: US-Merck Healthcare KGaA-9301680

PATIENT
  Sex: Female

DRUGS (1)
  1. EUTHYROX [Suspect]
     Active Substance: LEVOTHYROXINE SODIUM
     Indication: Hypothyroidism
     Dosage: UNKNOWN DOSE
     Route: 048
     Dates: start: 202202

REACTIONS (4)
  - Hormone level abnormal [Unknown]
  - Chest discomfort [Unknown]
  - Dizziness [Unknown]
  - Mood swings [Unknown]

NARRATIVE: CASE EVENT DATE: 20220201
